FAERS Safety Report 12738854 (Version 1)
Quarter: 2016Q3

REPORT INFORMATION
  Report Type: Report from Study
  Country: GB (occurrence: GB)
  Receive Date: 20160912
  Receipt Date: 20160912
  Transmission Date: 20161109
  Serious: Yes (Other)
  Sender: FDA-Public Use
  Company Number: GB-IPCA LABORATORIES LIMITED-IPC201609-000743

PATIENT

DRUGS (4)
  1. ALLOPURINOL. [Suspect]
     Active Substance: ALLOPURINOL
     Indication: INFLAMMATORY BOWEL DISEASE
  2. ALLOPURINOL. [Suspect]
     Active Substance: ALLOPURINOL
     Indication: CROHN^S DISEASE
  3. AZATHIOPRINE. [Suspect]
     Active Substance: AZATHIOPRINE
     Indication: CROHN^S DISEASE
  4. AZATHIOPRINE. [Suspect]
     Active Substance: AZATHIOPRINE
     Indication: INFLAMMATORY BOWEL DISEASE

REACTIONS (1)
  - Pancreatitis [Unknown]
